FAERS Safety Report 26203512 (Version 1)
Quarter: 2025Q4

REPORT INFORMATION
  Report Type: Spontaneous
  Country: US (occurrence: None)
  Receive Date: 20251224
  Receipt Date: 20251224
  Transmission Date: 20260118
  Serious: Yes (Other)
  Sender: FDA-CTU
  Company Number: None

PATIENT
  Age: 67 Year
  Sex: Female

DRUGS (1)
  1. CIPROFLOXACIN [Suspect]
     Active Substance: CIPROFLOXACIN
     Indication: Urinary tract infection
     Dosage: 1 DF DOSAGE FORM TWICE A DAY ORAL
     Route: 048
     Dates: start: 20251223, end: 20251223

REACTIONS (2)
  - Headache [None]
  - Speech disorder [None]

NARRATIVE: CASE EVENT DATE: 20251223
